FAERS Safety Report 7822577-6 (Version None)
Quarter: 2011Q4

REPORT INFORMATION
  Report Type: 
  Country: None (occurrence: None)
  Receive Date: 20111018
  Receipt Date: 20111017
  Transmission Date: 20120403
  Serious: Yes (Hospitalization)
  Sender: FDA-Public Use
  Company Number: US-BAXTER-2011BH030787

PATIENT
  Sex: Male

DRUGS (1)
  1. DIANEAL [Suspect]
     Indication: PERITONEAL DIALYSIS
     Route: 033
     Dates: start: 20090801

REACTIONS (6)
  - VOMITING [None]
  - DECREASED APPETITE [None]
  - NAUSEA [None]
  - DIARRHOEA [None]
  - BRADYCARDIA [None]
  - ABDOMINAL PAIN [None]
